FAERS Safety Report 10160641 (Version 1)
Quarter: 2014Q2

REPORT INFORMATION
  Report Type: Spontaneous
  Country: PR (occurrence: PR)
  Receive Date: 20140508
  Receipt Date: 20140508
  Transmission Date: 20141212
  Serious: Yes (Hospitalization, Other)
  Sender: FDA-Public Use
  Company Number: PR-ROXANE LABORATORIES, INC.-2014-RO-00712RO

PATIENT
  Age: 24 Year
  Sex: Female

DRUGS (7)
  1. PREDNISONE [Suspect]
     Indication: SYSTEMIC LUPUS ERYTHEMATOSUS
     Route: 065
  2. PREDNISONE [Suspect]
     Dosage: 60 MG
     Route: 065
     Dates: start: 200802
  3. MYCOPHENOLATE MOFETIL [Suspect]
     Indication: SYSTEMIC LUPUS ERYTHEMATOSUS
     Route: 065
     Dates: start: 200802
  4. AZATHIOPRINE [Suspect]
     Indication: SYSTEMIC LUPUS ERYTHEMATOSUS
     Dosage: 100 MG
     Route: 065
     Dates: start: 200802
  5. HYDROXYCHLOROQUINE [Suspect]
     Indication: SYSTEMIC LUPUS ERYTHEMATOSUS
     Route: 065
  6. CYCLOPHOSPHAMIDE [Suspect]
     Indication: SYSTEMIC LUPUS ERYTHEMATOSUS
     Route: 042
  7. METHYLPREDNISOLONE [Suspect]
     Indication: SYSTEMIC LUPUS ERYTHEMATOSUS
     Route: 065

REACTIONS (6)
  - Osteonecrosis [Recovered/Resolved]
  - Condition aggravated [Recovered/Resolved]
  - Antiphospholipid syndrome [Unknown]
  - Klebsiella infection [Unknown]
  - Enterococcal infection [Unknown]
  - Abdominal discomfort [Unknown]
